FAERS Safety Report 4694371-9 (Version None)
Quarter: 2005Q2

REPORT INFORMATION
  Report Type: 
  Country: None (occurrence: None)
  Receive Date: 20050614
  Receipt Date: 20050307
  Transmission Date: 20051028
  Serious: No
  Sender: FDA-Public Use
  Company Number: USA050392535

PATIENT
  Sex: Male

DRUGS (4)
  1. CIALIS [Suspect]
     Indication: ERECTILE DYSFUNCTION
     Dosage: 20 MG DAY
     Dates: start: 20041001
  2. NEXIUM [Concomitant]
  3. LEVOTHYROXINE [Concomitant]
  4. IRON [Concomitant]

REACTIONS (1)
  - DRUG INEFFECTIVE [None]
